FAERS Safety Report 6912051-3 (Version None)
Quarter: 2010Q3

REPORT INFORMATION
  Report Type: 
  Country: None (occurrence: None)
  Receive Date: 20100806
  Receipt Date: 20071120
  Transmission Date: 20110219
  Serious: No
  Sender: FDA-Public Use
  Company Number: US-PFIZER INC-2007095021

PATIENT
  Sex: Male
  Weight: 93.636 kg

DRUGS (6)
  1. DETROL LA [Suspect]
     Indication: HYPERTONIC BLADDER
     Route: 048
     Dates: start: 20070101
  2. OXYBUTYNIN CHLORIDE [Concomitant]
     Route: 061
  3. COPAXONE [Concomitant]
     Indication: MULTIPLE SCLEROSIS
     Route: 051
  4. VALSARTAN [Concomitant]
     Indication: HYPERTENSION
  5. MULTI-VITAMINS [Concomitant]
  6. PREDNISONE [Concomitant]
     Indication: MULTIPLE SCLEROSIS

REACTIONS (1)
  - DRUG INEFFECTIVE [None]
